FAERS Safety Report 6312901-8 (Version None)
Quarter: 2009Q3

REPORT INFORMATION
  Report Type: 
  Country: None (occurrence: None)
  Receive Date: 20090818
  Receipt Date: 20090807
  Transmission Date: 20100115
  Serious: Yes (Other)
  Sender: FDA-Public Use
  Company Number: US-AMGEN-QUU359353

PATIENT
  Sex: Female

DRUGS (1)
  1. ENBREL [Suspect]
     Indication: PSORIASIS
     Route: 058

REACTIONS (6)
  - ALOPECIA [None]
  - CONTUSION [None]
  - DRUG INEFFECTIVE [None]
  - THROAT CANCER [None]
  - THROAT TIGHTNESS [None]
  - WEIGHT DECREASED [None]
